FAERS Safety Report 9025217 (Version 1)
Quarter: 2013Q1

REPORT INFORMATION
  Report Type: Spontaneous
  Country: AU (occurrence: AU)
  Receive Date: 20130122
  Receipt Date: 20130122
  Transmission Date: 20140127
  Serious: Yes (Life-Threatening)
  Sender: FDA-Public Use
  Company Number: AU-ROCHE-1181997

PATIENT
  Age: 25 Year
  Sex: Male

DRUGS (4)
  1. CELLCEPT [Suspect]
     Indication: PRODUCT USED FOR UNKNOWN INDICATION
     Route: 048
     Dates: start: 20120917, end: 20121124
  2. MEGAFOL [Concomitant]
  3. MIRCERA [Concomitant]
     Route: 065
  4. OSTELIN [Concomitant]

REACTIONS (2)
  - Febrile neutropenia [Recovered/Resolved]
  - Tooth abscess [Unknown]
